FAERS Safety Report 11153995 (Version 1)
Quarter: 2015Q2

REPORT INFORMATION
  Report Type: Spontaneous
  Country: US (occurrence: US)
  Receive Date: 20150602
  Receipt Date: 20150602
  Transmission Date: 20150821
  Serious: No
  Sender: FDA-Public Use
  Company Number: US-NOVEN PHARMACEUTICALS, INC.-14US010288

PATIENT
  Age: 7 Year
  Sex: Female
  Weight: 21.77 kg

DRUGS (1)
  1. DAYTRANA [Suspect]
     Active Substance: METHYLPHENIDATE
     Indication: ATTENTION DEFICIT/HYPERACTIVITY DISORDER
     Dosage: 10 MG, QD
     Route: 062
     Dates: start: 20140826

REACTIONS (6)
  - Drug administration error [Recovered/Resolved]
  - Application site erythema [Not Recovered/Not Resolved]
  - Product quality issue [Recovered/Resolved]
  - Application site pruritus [Not Recovered/Not Resolved]
  - Application site swelling [Not Recovered/Not Resolved]
  - Application site laceration [Recovered/Resolved]

NARRATIVE: CASE EVENT DATE: 20140825
